FAERS Safety Report 25797966 (Version 1)
Quarter: 2025Q3

REPORT INFORMATION
  Report Type: Spontaneous
  Country: US (occurrence: US)
  Receive Date: 20250912
  Receipt Date: 20250912
  Transmission Date: 20251020
  Serious: Yes (Other)
  Sender: EISAI
  Company Number: US-Eisai-EC-2025-196281

PATIENT
  Sex: Male

DRUGS (1)
  1. LEQEMBI [Suspect]
     Active Substance: LECANEMAB-IRMB
     Indication: Product used for unknown indication
     Route: 042

REACTIONS (3)
  - Cerebellar infarction [Unknown]
  - Syncope [Unknown]
  - Cerebellar microhaemorrhage [Unknown]
